FAERS Safety Report 10233902 (Version 1)
Quarter: 2014Q2

REPORT INFORMATION
  Report Type: Spontaneous
  Country: GB (occurrence: GB)
  Receive Date: 20140612
  Receipt Date: 20140612
  Transmission Date: 20141212
  Serious: Yes (Other)
  Sender: FDA-Public Use
  Company Number: GB-WATSON-2014-12042

PATIENT
  Age: 58 Year
  Sex: Female

DRUGS (5)
  1. EPIRUBICIN (UNKNOWN) [Suspect]
     Indication: BREAST CANCER
     Dosage: UNK
     Route: 065
  2. CYCLOPHOSPHAMIDE (UNKNOWN) [Suspect]
     Indication: BREAST CANCER
     Dosage: UNK
     Route: 065
  3. DEXAMETHASONE (UNKNOWN) [Suspect]
     Indication: ANTIEMETIC SUPPORTIVE CARE
     Dosage: UNK
     Route: 065
  4. DOMPERIDONE (UNKNOWN) [Suspect]
     Indication: ANTIEMETIC SUPPORTIVE CARE
     Dosage: 10MG, TID
     Route: 048
  5. FLUOROURACIL [Suspect]
     Indication: BREAST CANCER
     Dosage: UNKNOWN
     Route: 065

REACTIONS (3)
  - Urinary retention [Recovered/Resolved]
  - Peripheral swelling [Recovered/Resolved]
  - Peripheral swelling [Recovered/Resolved]
